FAERS Safety Report 7395679-9 (Version None)
Quarter: 2011Q2

REPORT INFORMATION
  Report Type: 
  Country: None (occurrence: None)
  Receive Date: 20110405
  Receipt Date: 20110328
  Transmission Date: 20111010
  Serious: Yes (Hospitalization, Other)
  Sender: FDA-Public Use
  Company Number: GB-NAPPMUNDI-GBR-2011-0007995

PATIENT
  Age: 46 Year
  Sex: Male

DRUGS (12)
  1. LEVOMEPROMAZINE [Concomitant]
     Dosage: 25 MG, UNK
  2. MORPHINE SULFATE [Suspect]
     Indication: PRODUCT USED FOR UNKNOWN INDICATION
     Route: 048
  3. LEVOMEPROMAZINE [Concomitant]
     Dosage: 50 MG, UNK
  4. CLONAZEPAM [Concomitant]
     Dosage: 0.5 MG, UNK
  5. DEXAMETHASONE [Concomitant]
     Dosage: 8 MG, BID
  6. CYCLIZINE [Concomitant]
     Dosage: 150 MG, UNK
  7. MORPHINE SULFATE [Suspect]
     Dosage: 40 MG, UNK
     Route: 042
  8. MIDAZOLAM HCL [Concomitant]
     Dosage: 50 MG, UNK
  9. MIDAZOLAM HCL [Concomitant]
     Dosage: 20 MG, UNK
     Route: 042
  10. MORPHINE SULFATE [Suspect]
     Indication: PRODUCT USED FOR UNKNOWN INDICATION
     Dosage: 80 MG, UNK
  11. METOCLOPRAMIDE [Concomitant]
     Dosage: 30 MG, UNK
     Route: 042
  12. MIDAZOLAM HCL [Concomitant]
     Dosage: 10 MG, UNK

REACTIONS (4)
  - HYPOAESTHESIA [None]
  - HYPERAESTHESIA [None]
  - HEADACHE [None]
  - VOMITING [None]
